FAERS Safety Report 14319364 (Version 4)
Quarter: 2018Q1

REPORT INFORMATION
  Report Type: Report from Study
  Country: US (occurrence: US)
  Receive Date: 20171222
  Receipt Date: 20180322
  Transmission Date: 20180509
  Serious: Yes (Other)
  Sender: FDA-Public Use
  Company Number: US-ARIAD PHARMACEUTICALS, INC-2017US009186

PATIENT
  Age: 48 Year
  Sex: Female
  Weight: 77.55 kg

DRUGS (2)
  1. PONATINIB [Suspect]
     Active Substance: PONATINIB
     Indication: CHRONIC MYELOID LEUKAEMIA
     Dosage: 45 MG, QD
     Route: 048
     Dates: start: 20170826, end: 20180211
  2. PONATINIB [Suspect]
     Active Substance: PONATINIB
     Dosage: 45 MG, QD
     Route: 048
     Dates: start: 201708

REACTIONS (30)
  - Oedema [Unknown]
  - Chest pain [Unknown]
  - Depression [Unknown]
  - Pain in extremity [Unknown]
  - Pain [Unknown]
  - Mucosal dryness [Unknown]
  - Skin abrasion [Unknown]
  - Gastrointestinal ulcer haemorrhage [Unknown]
  - Discomfort [Unknown]
  - Rash pruritic [Unknown]
  - Decreased appetite [Unknown]
  - Dehydration [Unknown]
  - Abdominal pain upper [Unknown]
  - Neutropenia [Unknown]
  - Contusion [Unknown]
  - Pallor [Unknown]
  - Musculoskeletal pain [Unknown]
  - Insomnia [Unknown]
  - Bone pain [Unknown]
  - Upper respiratory tract infection [Unknown]
  - Proctalgia [Unknown]
  - Malaise [Unknown]
  - Constipation [Unknown]
  - Dysphonia [Unknown]
  - Pulmonary embolism [Unknown]
  - Breast pain [Unknown]
  - Swelling [Unknown]
  - Anxiety [Unknown]
  - Dyspnoea exertional [Unknown]
  - Nasopharyngitis [Unknown]

NARRATIVE: CASE EVENT DATE: 20180209
